FAERS Safety Report 9802390 (Version 2)
Quarter: 2014Q1

REPORT INFORMATION
  Report Type: Spontaneous
  Country: US (occurrence: US)
  Receive Date: 20140107
  Receipt Date: 20140207
  Transmission Date: 20141002
  Serious: No
  Sender: FDA-Public Use
  Company Number: US-009507513-1401USA001890

PATIENT
  Sex: Female
  Weight: 56.69 kg

DRUGS (5)
  1. OXYTROL FOR WOMEN [Suspect]
     Indication: NOCTURIA
     Dosage: UNK, UNKNOWN
     Route: 062
     Dates: end: 20131218
  2. DIOVAN [Concomitant]
     Indication: HYPERTENSION
     Dosage: UNK, UNKNOWN
  3. HYDRALAZINE [Concomitant]
     Indication: HYPERTENSION
     Dosage: UNK, UNKNOWN
  4. CLONIDINE [Concomitant]
     Indication: HYPERTENSION
     Dosage: UNK, UNKNOWN
  5. NIFEDIPINE [Concomitant]
     Indication: HYPERTENSION
     Dosage: UNK, UNKNOWN

REACTIONS (1)
  - Erythema [Recovering/Resolving]
